FAERS Safety Report 7717813-0 (Version None)
Quarter: 2011Q3

REPORT INFORMATION
  Report Type: 
  Country: None (occurrence: None)
  Receive Date: 20110824
  Receipt Date: 20110816
  Transmission Date: 20111222
  Serious: Yes (Death, Hospitalization, Other)
  Sender: FDA-Public Use
  Company Number: AUR-APL-2011-04700

PATIENT
  Age: 52 Year
  Sex: Female

DRUGS (3)
  1. HALOPERIDOL [Suspect]
     Indication: PRODUCT USED FOR UNKNOWN INDICATION
  2. QUETIAPINE FUMARATE [Suspect]
     Indication: PRODUCT USED FOR UNKNOWN INDICATION
  3. MIRTAZAPINE [Suspect]
     Indication: DEPRESSION
     Dosage: (15 MG)

REACTIONS (11)
  - MASTOIDITIS [None]
  - PAIN [None]
  - INCORRECT DOSE ADMINISTERED [None]
  - OTITIS MEDIA [None]
  - RESPIRATORY FAILURE [None]
  - MENTAL STATUS CHANGES [None]
  - NEUROLEPTIC MALIGNANT SYNDROME [None]
  - INSOMNIA [None]
  - AGGRESSION [None]
  - BLOOD LACTIC ACID INCREASED [None]
  - DRUG INEFFECTIVE [None]
